FAERS Safety Report 8593020-7 (Version None)
Quarter: 2012Q3

REPORT INFORMATION
  Report Type: 
  Country: None (occurrence: None)
  Receive Date: 20120814
  Receipt Date: 20120801
  Transmission Date: 20120928
  Serious: Yes (Other)
  Sender: FDA-Public Use
  Company Number: JP-FRI-1000037584

PATIENT
  Age: 18 Year
  Sex: Female

DRUGS (9)
  1. LEXAPRO [Suspect]
     Dosage: 20 MG
     Route: 048
  2. ABILIFY [Concomitant]
     Dosage: 2 MG
     Route: 048
  3. HALCION [Concomitant]
     Route: 048
  4. LENDORMIN [Concomitant]
     Dosage: 0.25 MG
     Route: 048
  5. EVAMYL [Concomitant]
     Dosage: 1 MG
     Route: 048
  6. CYMBALTA [Concomitant]
     Dosage: 40 MG
     Route: 048
  7. SOMELIN [Concomitant]
     Route: 048
  8. ALPRAZOLAM [Concomitant]
     Route: 048
  9. DEPAS [Concomitant]
     Route: 048

REACTIONS (1)
  - INTENTIONAL SELF-INJURY [None]
